FAERS Safety Report 17003437 (Version 1)
Quarter: 2019Q4

REPORT INFORMATION
  Report Type: Spontaneous
  Country: US (occurrence: US)
  Receive Date: 20191107
  Receipt Date: 20191107
  Transmission Date: 20200122
  Serious: Yes (Hospitalization, Other)
  Sender: FDA-Public Use
  Company Number: US-AMGEN-USASP2019182902

PATIENT
  Age: 49 Year
  Sex: Male

DRUGS (2)
  1. VECTIBIX [Suspect]
     Active Substance: PANITUMUMAB
     Indication: COLORECTAL CANCER METASTATIC
     Dosage: 520 MILLIGRAM
     Route: 065
     Dates: end: 20190415
  2. VECTIBIX [Suspect]
     Active Substance: PANITUMUMAB
     Dosage: 520 MILLIGRAM
     Route: 065
     Dates: start: 20190429

REACTIONS (3)
  - Small intestinal obstruction [Unknown]
  - Dyspnoea [Unknown]
  - Urinary tract infection [Unknown]

NARRATIVE: CASE EVENT DATE: 20190415
